FAERS Safety Report 8060371-4 (Version None)
Quarter: 2012Q1

REPORT INFORMATION
  Report Type: 
  Country: None (occurrence: None)
  Receive Date: 20120120
  Receipt Date: 20120113
  Transmission Date: 20120608
  Serious: Yes (Hospitalization)
  Sender: FDA-Public Use
  Company Number: US-ABBOTT-12P-163-0893900-00

PATIENT
  Sex: Female
  Weight: 81.72 kg

DRUGS (12)
  1. SIMVASTATIN [Concomitant]
     Indication: PRODUCT USED FOR UNKNOWN INDICATION
     Route: 048
  2. NIASPAN [Suspect]
     Indication: BLOOD TRIGLYCERIDES INCREASED
     Route: 048
     Dates: start: 20100101
  3. ASPIRIN [Suspect]
     Route: 048
  4. FENOFIBRATE [Concomitant]
     Indication: PRODUCT USED FOR UNKNOWN INDICATION
     Route: 050
  5. PROAIR HFA [Concomitant]
     Indication: EMPHYSEMA
  6. ASPIRIN [Suspect]
     Route: 048
  7. DULERA ORAL INHALATION [Concomitant]
     Indication: EMPHYSEMA
  8. LISINOPRIL AND HYDROCHLOROTHIAZIDE [Concomitant]
     Indication: HYPERTENSION
     Dosage: 10/12.5MG; 1 IN 1 DAY
     Route: 048
  9. GLYBURIDE [Concomitant]
     Indication: DIABETES MELLITUS
     Dosage: 4 TABS; 2.5/500MG; 2 IN 1 DAY
     Route: 048
  10. SPIRIVA [Concomitant]
     Indication: EMPHYSEMA
  11. ASPIRIN [Suspect]
     Indication: PRODUCT USED FOR UNKNOWN INDICATION
     Route: 048
  12. LEVEMIR [Concomitant]
     Indication: DIABETES MELLITUS
     Dosage: EVERY AM; 1 IN 1 DAY
     Route: 058

REACTIONS (12)
  - ARTHRALGIA [None]
  - DYSPNOEA [None]
  - DEHYDRATION [None]
  - ABDOMINAL PAIN UPPER [None]
  - ACTIVITIES OF DAILY LIVING IMPAIRED [None]
  - PAIN [None]
  - ASTHENIA [None]
  - DIARRHOEA [None]
  - HYPOTENSION [None]
  - BLOOD CALCIUM ABNORMAL [None]
  - HEADACHE [None]
  - PNEUMONIA [None]
